FAERS Safety Report 12503157 (Version 1)
Quarter: 2016Q2

REPORT INFORMATION
  Report Type: Other
  Country: US (occurrence: US)
  Receive Date: 20160628
  Receipt Date: 20160628
  Transmission Date: 20160815
  Serious: Yes (Hospitalization, Other)
  Sender: FDA-Public Use
  Company Number: US-ACTELION-A-CH2016-138353

PATIENT
  Age: 35 Year
  Sex: Female

DRUGS (1)
  1. VELETRI [Suspect]
     Active Substance: EPOPROSTENOL
     Indication: PULMONARY ARTERIAL HYPERTENSION
     Dosage: 7 NG/KG, PER MIN
     Route: 042

REACTIONS (4)
  - Exposure during pregnancy [Unknown]
  - Blood pressure decreased [Recovered/Resolved]
  - Extracorporeal membrane oxygenation [Unknown]
  - Cardiac failure congestive [Recovered/Resolved]
